FAERS Safety Report 13839106 (Version 1)
Quarter: 2017Q3

REPORT INFORMATION
  Report Type: Spontaneous
  Country: US (occurrence: US)
  Receive Date: 20170806
  Receipt Date: 20170806
  Transmission Date: 20171127
  Serious: Yes (Life-Threatening, Disabling, Other)
  Sender: FDA-Public Use
  Company Number: None

PATIENT
  Age: 62 Year
  Sex: Female
  Weight: 60.75 kg

DRUGS (2)
  1. BOTOX [Suspect]
     Active Substance: ONABOTULINUMTOXINA
     Indication: SKIN WRINKLING
     Route: 058
     Dates: start: 20170406
  2. WARAFIN [Concomitant]
     Active Substance: WARFARIN

REACTIONS (12)
  - Oropharyngeal pain [None]
  - Gait disturbance [None]
  - Neck pain [None]
  - Injection site inflammation [None]
  - Drooling [None]
  - Movement disorder [None]
  - Arthralgia [None]
  - Dysarthria [None]
  - Joint swelling [None]
  - Feeling abnormal [None]
  - Rash [None]
  - Paraesthesia [None]

NARRATIVE: CASE EVENT DATE: 20170406
